FAERS Safety Report 13260184 (Version 4)
Quarter: 2017Q2

REPORT INFORMATION
  Report Type: Report from Study
  Country: US (occurrence: BR)
  Receive Date: 20170222
  Receipt Date: 20170602
  Transmission Date: 20170830
  Serious: Yes (Other)
  Sender: FDA-Public Use
  Company Number: US-SUNOVION-2017SUN000720

PATIENT
  Sex: Female

DRUGS (4)
  1. INDACATEROL AND GLYCOPYRROLATE [Suspect]
     Active Substance: GLYCOPYRROLATE\INDACATEROL MALEATE
     Indication: EMPHYSEMA
  2. INDACATEROL AND GLYCOPYRROLATE [Suspect]
     Active Substance: GLYCOPYRROLATE\INDACATEROL MALEATE
     Indication: BRONCHITIS CHRONIC
     Dosage: 1 DF(110/50 UG), QD
     Route: 055
     Dates: start: 20170117
  3. INDACATEROL AND GLYCOPYRROLATE [Suspect]
     Active Substance: GLYCOPYRROLATE\INDACATEROL MALEATE
     Indication: DYSPNOEA
  4. INDACATEROL AND GLYCOPYRROLATE [Suspect]
     Active Substance: GLYCOPYRROLATE\INDACATEROL MALEATE
     Indication: FATIGUE

REACTIONS (25)
  - Drug-induced liver injury [Unknown]
  - General physical condition abnormal [Unknown]
  - Memory impairment [Unknown]
  - Body height decreased [Unknown]
  - Secretion discharge [Recovering/Resolving]
  - Epistaxis [Unknown]
  - Nasal septum deviation [Not Recovered/Not Resolved]
  - Product odour abnormal [Unknown]
  - Incorrect dose administered [Unknown]
  - Condition aggravated [Not Recovered/Not Resolved]
  - Fatigue [Unknown]
  - Wrong technique in device usage process [Unknown]
  - Product use in unapproved indication [Unknown]
  - Device malfunction [Unknown]
  - Emotional distress [Unknown]
  - Tremor [Unknown]
  - Rhinitis [Recovering/Resolving]
  - Anaemia [Unknown]
  - Asphyxia [Unknown]
  - Influenza [Not Recovered/Not Resolved]
  - Bronchitis chronic [Not Recovered/Not Resolved]
  - Rhinorrhoea [Not Recovered/Not Resolved]
  - Dyspnoea [Not Recovered/Not Resolved]
  - Cough [Unknown]
  - Nasopharyngitis [Recovering/Resolving]
